FAERS Safety Report 21453629 (Version 2)
Quarter: 2022Q4

REPORT INFORMATION
  Report Type: Spontaneous
  Country: TH (occurrence: TH)
  Receive Date: 20221013
  Receipt Date: 20221028
  Transmission Date: 20230113
  Serious: Yes (Hospitalization)
  Sender: FDA-Public Use
  Company Number: TH-TEVA-2022-TH-2816318

PATIENT
  Age: 68 Year
  Sex: Female

DRUGS (12)
  1. CARBOPLATIN [Suspect]
     Active Substance: CARBOPLATIN
     Indication: Ureteric cancer
     Dosage: AUC 5, FOR 8 CYCLES
     Route: 065
  2. PACLITAXEL [Suspect]
     Active Substance: PACLITAXEL
     Indication: Ureteric cancer
     Dosage: 8.3333 MG/M2 DAILY; 3 COURSES
     Route: 065
  3. GEMCITABINE [Suspect]
     Active Substance: GEMCITABINE
     Indication: Ureteric cancer
     Dosage: 1000 MG/M2 DAILY; 8 CYCLES
     Route: 065
  4. PREDNISOLONE [Suspect]
     Active Substance: PREDNISOLONE
     Indication: Systemic scleroderma
     Route: 065
  5. MYCOPHENOLATE MOFETIL [Suspect]
     Active Substance: MYCOPHENOLATE MOFETIL
     Indication: Systemic scleroderma
     Route: 065
  6. HYDROXYCHLOROQUINE [Suspect]
     Active Substance: HYDROXYCHLOROQUINE
     Indication: Systemic scleroderma
     Route: 065
  7. AMLODIPINE [Suspect]
     Active Substance: AMLODIPINE BESYLATE
     Indication: Systemic scleroderma
     Route: 065
  8. ENALAPRIL [Suspect]
     Active Substance: ENALAPRIL
     Indication: Systemic scleroderma
     Route: 065
  9. OMEPRAZOLE [Concomitant]
     Active Substance: OMEPRAZOLE
     Indication: Product used for unknown indication
     Route: 065
  10. DOMPERIDONE [Concomitant]
     Active Substance: DOMPERIDONE
     Indication: Product used for unknown indication
     Route: 065
  11. LOSARTAN [Concomitant]
     Active Substance: LOSARTAN
     Indication: Hypertension
     Route: 065
  12. SIMVASTATIN [Concomitant]
     Active Substance: SIMVASTATIN
     Indication: Dyslipidaemia
     Route: 065

REACTIONS (5)
  - Systemic scleroderma [Unknown]
  - Scleroderma renal crisis [Unknown]
  - Haemorrhage [Unknown]
  - Disseminated intravascular coagulation [Unknown]
  - Drug ineffective [Unknown]
